FAERS Safety Report 7246042-2 (Version None)
Quarter: 2011Q1

REPORT INFORMATION
  Report Type: 
  Country: None (occurrence: None)
  Receive Date: 20110126
  Receipt Date: 20110124
  Transmission Date: 20110831
  Serious: Yes (Death)
  Sender: FDA-Public Use
  Company Number: A0908592A

PATIENT

DRUGS (1)
  1. NICODERM CQ [Suspect]
     Route: 062

REACTIONS (1)
  - DEATH [None]
